FAERS Safety Report 21922261 (Version 1)
Quarter: 2023Q1

REPORT INFORMATION
  Report Type: Report from Study
  Country: GB (occurrence: GB)
  Receive Date: 20230128
  Receipt Date: 20230128
  Transmission Date: 20230417
  Serious: Yes (Death)
  Sender: FDA-Public Use
  Company Number: GB-002147023-NVSC2023GB018930

PATIENT
  Age: 74 Year
  Sex: Female

DRUGS (1)
  1. COSENTYX [Suspect]
     Active Substance: SECUKINUMAB
     Indication: Psoriatic arthropathy
     Dosage: 300 MG, QMO (2 PRE-FILLED DISPOSABLE INJECTIONS OF 150 MG)
     Route: 058
     Dates: start: 20230112

REACTIONS (1)
  - Death [Fatal]

NARRATIVE: CASE EVENT DATE: 20230113
